FAERS Safety Report 25058575 (Version 2)
Quarter: 2025Q4

REPORT INFORMATION
  Report Type: Report from Study
  Country: EU (occurrence: EU)
  Receive Date: 20250310
  Receipt Date: 20251007
  Transmission Date: 20260118
  Serious: No
  Sender: ROCHE
  Company Number: EU-ROCHE-2826496

PATIENT
  Age: 39 Year
  Sex: Female
  Weight: 74.0 kg

DRUGS (29)
  1. OCRELIZUMAB [Suspect]
     Active Substance: OCRELIZUMAB
     Indication: Relapsing multiple sclerosis
     Route: 042
     Dates: start: 20181120, end: 20181204
  2. OCRELIZUMAB [Suspect]
     Active Substance: OCRELIZUMAB
     Route: 042
     Dates: start: 20190514, end: 20220510
  3. NEURONTIN [Concomitant]
     Active Substance: GABAPENTIN
     Indication: Neuralgia
     Route: 048
     Dates: start: 201912
  4. NEURONTIN [Concomitant]
     Active Substance: GABAPENTIN
     Route: 048
     Dates: start: 201912
  5. NEURONTIN [Concomitant]
     Active Substance: GABAPENTIN
     Route: 048
     Dates: start: 201807, end: 201912
  6. NEURONTIN [Concomitant]
     Active Substance: GABAPENTIN
     Route: 048
     Dates: end: 20221110
  7. NEURONTIN [Concomitant]
     Active Substance: GABAPENTIN
     Route: 048
     Dates: start: 20221111
  8. PREDNISOLONE [Concomitant]
     Active Substance: PREDNISOLONE
     Indication: Multiple sclerosis relapse
     Route: 048
     Dates: start: 20190212, end: 20190214
  9. BETAMETHASONE DIPROPIONATE\GENTAMICIN SULFATE [Concomitant]
     Active Substance: BETAMETHASONE DIPROPIONATE\GENTAMICIN SULFATE
     Indication: Neurodermatitis
     Dosage: DEFINITION OF THE INTERVAL: AS REQUIRED
     Route: 061
     Dates: start: 201911
  10. INFLUVAC [Concomitant]
     Active Substance: INFLUENZA VIRUS VACCINE TRIVALENT TYPE A+B
     Indication: Immunisation
     Route: 030
     Dates: start: 20180927, end: 20180927
  11. CIPRALEX [Concomitant]
     Active Substance: ESCITALOPRAM OXALATE
     Indication: Burnout syndrome
     Route: 048
     Dates: start: 201409
  12. SPASMEX (GERMANY) [Concomitant]
     Indication: Neurogenic bladder
     Route: 048
     Dates: start: 20190604, end: 20190612
  13. SPASMEX (GERMANY) [Concomitant]
     Dosage: DEFINITION OF THE INTERVAL: AS REQUIRED
     Route: 048
     Dates: start: 201909
  14. LORATADINE [Concomitant]
     Active Substance: LORATADINE
     Indication: Seasonal allergy
     Dosage: DEFINITION OF THE INTERVAL: AS REQUIRED
     Route: 048
  15. TIZANIDINE HYDROCHLORIDE [Concomitant]
     Active Substance: TIZANIDINE HYDROCHLORIDE
     Indication: Spinal pain
     Route: 048
     Dates: start: 20190115, end: 201902
  16. CHOLECALCIFEROL [Concomitant]
     Active Substance: CHOLECALCIFEROL
     Indication: Vitamin D deficiency
     Route: 048
     Dates: start: 201610
  17. BOOSTRIX [Concomitant]
     Active Substance: TETANUS TOXOID, REDUCED DIPHTHERIA TOXOID AND ACELLULAR PERTUSSIS VACCINE ADSORBED, TDAP
     Indication: Immunisation
     Route: 030
     Dates: start: 20180927, end: 20180927
  18. PROPIVERINE HYDROCHLORIDE [Concomitant]
     Active Substance: PROPIVERINE HYDROCHLORIDE
     Indication: Neurogenic bladder
     Route: 048
     Dates: start: 20190613, end: 20190620
  19. IBUPROFEN [Concomitant]
     Active Substance: IBUPROFEN
     Indication: Spinal pain
     Dosage: AS REQUIRED
     Route: 048
     Dates: start: 201808
  20. SODIUM PROPIONATE [Concomitant]
     Active Substance: SODIUM PROPIONATE
     Indication: Multiple sclerosis
     Route: 048
     Dates: end: 201908
  21. MOVICOL [Concomitant]
     Active Substance: POLYETHYLENE GLYCOL 3350\POTASSIUM CHLORIDE\SODIUM BICARBONATE\SODIUM CHLORIDE
     Indication: Constipation
     Route: 048
     Dates: start: 202009
  22. VITAMIN B12 [Concomitant]
     Active Substance: CYANOCOBALAMIN
     Indication: Prophylaxis
     Route: 048
     Dates: start: 20211002
  23. Comirnaty [Concomitant]
     Indication: COVID-19 immunisation
     Dosage: 1 ST VACCINATION
     Route: 030
     Dates: start: 20210903, end: 20210903
  24. Comirnaty [Concomitant]
     Dosage: 2ND VACCINATION
     Route: 030
     Dates: start: 20211001, end: 20211001
  25. SHINGRIX [Concomitant]
     Active Substance: RECOMBINANT VARICELLA ZOSTER VIRUS (VZV) GLYCOPROTEIN E
     Indication: Herpes zoster immunisation
     Route: 030
     Dates: start: 20220627, end: 20220627
  26. SHINGRIX [Concomitant]
     Active Substance: RECOMBINANT VARICELLA ZOSTER VIRUS (VZV) GLYCOPROTEIN E
     Route: 030
     Dates: start: 20220222, end: 20220222
  27. Metypred forte [Concomitant]
     Indication: Multiple sclerosis relapse
     Route: 042
     Dates: start: 20210625, end: 20210629
  28. SPIKEVAX [Concomitant]
     Active Substance: CX-046684
     Indication: COVID-19 immunisation
     Route: 030
     Dates: start: 20220115, end: 20220115
  29. PNEUMOVAX 23 [Concomitant]
     Active Substance: PNEUMOCOCCAL VACCINE, POLYVALENT 23
     Indication: Pneumococcal immunisation
     Route: 030
     Dates: start: 20220222, end: 20220222

REACTIONS (3)
  - Diarrhoea [Recovered/Resolved]
  - Nausea [Recovered/Resolved]
  - Vomiting [Recovered/Resolved]

NARRATIVE: CASE EVENT DATE: 20210101
